FAERS Safety Report 8499943-1 (Version None)
Quarter: 2012Q3

REPORT INFORMATION
  Report Type: 
  Country: None (occurrence: None)
  Receive Date: 20120703
  Receipt Date: 20120703
  Transmission Date: 20120928
  Serious: Yes (Other)
  Sender: FDA-Public Use
  Company Number: None

PATIENT
  Sex: Female
  Weight: 68.0396 kg

DRUGS (4)
  1. PAROXETINE [Suspect]
     Indication: DEPRESSION
     Dates: start: 20050923, end: 20051023
  2. PAROXETINE [Suspect]
     Indication: ANXIETY
     Dates: start: 20050923, end: 20051023
  3. PAROXETINE [Suspect]
     Indication: DEPRESSION
     Dates: start: 20070701, end: 20070801
  4. PAROXETINE [Suspect]
     Indication: ANXIETY
     Dates: start: 20070701, end: 20070801

REACTIONS (4)
  - PRODUCT SUBSTITUTION ISSUE [None]
  - DEPRESSION [None]
  - ANXIETY [None]
  - DISEASE RECURRENCE [None]
